FAERS Safety Report 12694720 (Version 1)
Quarter: 2016Q3

REPORT INFORMATION
  Report Type: Report from Study
  Country: BR (occurrence: BR)
  Receive Date: 20160829
  Receipt Date: 20160829
  Transmission Date: 20161109
  Serious: Yes (Other)
  Sender: FDA-Public Use
  Company Number: BR-JNJFOC-20160821470

PATIENT
  Age: 78 Year
  Sex: Female

DRUGS (8)
  1. COLECALCIFEROL [Concomitant]
     Active Substance: CHOLECALCIFEROL
     Route: 065
  2. METOTREXATE [Concomitant]
     Active Substance: METHOTREXATE SODIUM
     Route: 065
  3. GINKGO BILOBA [Concomitant]
     Active Substance: GINKGO
     Route: 065
  4. SIMPONI [Suspect]
     Active Substance: GOLIMUMAB
     Indication: RHEUMATOID ARTHRITIS
     Route: 058
     Dates: start: 20151221
  5. ARA 2 [Concomitant]
     Route: 065
  6. BETASERC [Concomitant]
     Active Substance: BETAHISTINE
     Route: 065
  7. LEVOTIROXIN [Concomitant]
     Route: 065
  8. ENDOFOLIN [Concomitant]
     Active Substance: FOLIC ACID
     Route: 065

REACTIONS (1)
  - Sinusitis [Not Recovered/Not Resolved]

NARRATIVE: CASE EVENT DATE: 201608
